FAERS Safety Report 10204204 (Version 2)
Quarter: 2014Q3

REPORT INFORMATION
  Report Type: Report from Study
  Country: BR (occurrence: BR)
  Receive Date: 20140529
  Receipt Date: 20140714
  Transmission Date: 20150326
  Serious: Yes (Hospitalization)
  Sender: FDA-Public Use
  Company Number: BR-NOVOPROD-411396

PATIENT
  Sex: Female
  Weight: 46 kg

DRUGS (3)
  1. NPH INSULIN [Concomitant]
     Active Substance: INSULIN BEEF
     Indication: TYPE 2 DIABETES MELLITUS
     Dosage: 35 IU IN THE MORNING + 25 IU AT NIGHT
     Route: 058
  2. NOVORAPID [Suspect]
     Active Substance: INSULIN ASPART
     Indication: TYPE 2 DIABETES MELLITUS
     Dosage: UNK
     Route: 065
  3. BROMAZEPAN VANNIER [Concomitant]
     Indication: SEDATIVE THERAPY
     Dosage: 2 TAB, UNK
     Route: 048

REACTIONS (2)
  - Tuberculosis [Recovered/Resolved]
  - Blood glucose decreased [Recovered/Resolved]
